FAERS Safety Report 15726409 (Version 2)
Quarter: 2019Q2

REPORT INFORMATION
  Report Type: Spontaneous
  Country: FR (occurrence: FR)
  Receive Date: 20181217
  Receipt Date: 20190419
  Transmission Date: 20190711
  Serious: Yes (Other)
  Sender: FDA-Public Use
  Company Number: FR-AUROBINDO-AUR-APL-2018-059896

PATIENT

DRUGS (7)
  1. DARATUMUMAB [Concomitant]
     Active Substance: DARATUMUMAB
     Indication: POEMS SYNDROME
     Dosage: UNK
     Route: 065
  2. SULFAMETHOXAZOLE;TRIMETHOPRIM [Suspect]
     Active Substance: SULFAMETHOXAZOLE\TRIMETHOPRIM
     Indication: POEMS SYNDROME
     Dosage: UNK
     Route: 065
     Dates: start: 201703
  3. AMITRIPTYLINE [Suspect]
     Active Substance: AMITRIPTYLINE
     Indication: POEMS SYNDROME
     Dosage: UNK
     Route: 065
     Dates: start: 201703
  4. VALACICLOVIR [Suspect]
     Active Substance: VALACYCLOVIR HYDROCHLORIDE
     Indication: POEMS SYNDROME
     Dosage: UNK
     Route: 065
     Dates: start: 201703
  5. PREGABALIN. [Concomitant]
     Active Substance: PREGABALIN
     Indication: POEMS SYNDROME
     Dosage: UNK
     Route: 065
  6. LENALIDOMIDE [Suspect]
     Active Substance: LENALIDOMIDE
     Indication: POEMS SYNDROME
     Dosage: UNK
     Route: 065
     Dates: start: 201703
  7. ESOMEPRAZOLE. [Suspect]
     Active Substance: ESOMEPRAZOLE MAGNESIUM
     Indication: POEMS SYNDROME
     Dosage: UNK
     Route: 065
     Dates: start: 201703

REACTIONS (2)
  - Hepatic function abnormal [Unknown]
  - Drug reaction with eosinophilia and systemic symptoms [Recovering/Resolving]

NARRATIVE: CASE EVENT DATE: 201704
